FAERS Safety Report 9412398 (Version 1)
Quarter: 2013Q3

REPORT INFORMATION
  Report Type: Spontaneous
  Country: None (occurrence: None)
  Receive Date: 20130708
  Receipt Date: 20130708
  Transmission Date: 20140515
  Serious: Yes (Hospitalization, Other)
  Sender: FDA-Public Use
  Company Number: 09-AUR-10297

PATIENT
  Age: 34 Year
  Sex: Male

DRUGS (1)
  1. CIPROFLOXACIN [Suspect]
     Indication: SINUSITIS

REACTIONS (6)
  - General physical health deterioration [None]
  - Haematochezia [None]
  - Abdominal pain [None]
  - Blood creatine phosphokinase increased [None]
  - Enterocolitis haemorrhagic [None]
  - Colitis ulcerative [None]
